FAERS Safety Report 21361142 (Version 1)
Quarter: 2022Q3

REPORT INFORMATION
  Report Type: Spontaneous
  Country: JP (occurrence: JP)
  Receive Date: 20220921
  Receipt Date: 20220921
  Transmission Date: 20221027
  Serious: Yes (Other)
  Sender: FDA-Public Use
  Company Number: JP-ELI_LILLY_AND_COMPANY-JP202208011038

PATIENT
  Sex: Female

DRUGS (2)
  1. RETEVMO [Suspect]
     Active Substance: SELPERCATINIB
     Indication: Non-small cell lung cancer
     Dosage: 320 MG, UNKNOWN
     Route: 048
     Dates: start: 20220802, end: 20220824
  2. AMLODIPINE [Suspect]
     Active Substance: AMLODIPINE BESYLATE
     Indication: Hypertension
     Dosage: 5 MG
     Route: 048
     Dates: start: 20220802

REACTIONS (8)
  - Cholecystitis [Unknown]
  - Leukopenia [Not Recovered/Not Resolved]
  - Hyponatraemia [Unknown]
  - Erythema [Unknown]
  - Back pain [Unknown]
  - Dry mouth [Recovering/Resolving]
  - Hypertension [Recovering/Resolving]
  - Thrombocytopenia [Recovered/Resolved]

NARRATIVE: CASE EVENT DATE: 20220824
